FAERS Safety Report 16873764 (Version 1)
Quarter: 2019Q4

REPORT INFORMATION
  Report Type: Spontaneous
  Country: AR (occurrence: AR)
  Receive Date: 20191001
  Receipt Date: 20191001
  Transmission Date: 20200122
  Serious: Yes (Other)
  Sender: FDA-Public Use
  Company Number: AR-PFIZER INC-2019418928

PATIENT
  Age: 44 Year
  Sex: Male

DRUGS (1)
  1. XELJANZ [Suspect]
     Active Substance: TOFACITINIB CITRATE
     Indication: RHEUMATOID ARTHRITIS
     Dosage: 5 MG, 2X/DAY
     Dates: start: 20170104

REACTIONS (4)
  - Fracture [Recovered/Resolved]
  - Bone marrow oedema [Recovered/Resolved]
  - Drug ineffective [Unknown]
  - Nail infection [Recovered/Resolved]

NARRATIVE: CASE EVENT DATE: 201901
